FAERS Safety Report 6389365-1 (Version None)
Quarter: 2009Q4

REPORT INFORMATION
  Report Type: 
  Country: None (occurrence: None)
  Receive Date: 20091006
  Receipt Date: 20090924
  Transmission Date: 20100525
  Serious: Yes (Other)
  Sender: FDA-Public Use
  Company Number: US-JNJFOC-20090907728

PATIENT
  Age: 9 Month
  Sex: Male
  Weight: 10.89 kg

DRUGS (2)
  1. TYLENOL (CAPLET) [Suspect]
     Route: 048
  2. TYLENOL (CAPLET) [Suspect]
     Indication: TOOTHACHE
     Dosage: 40 MG, EVERY 4 TO 6 HOURS, FOR ABOUT 1 TO 2 WEEKS
     Route: 048

REACTIONS (5)
  - INFECTION [None]
  - RHINORRHOEA [None]
  - TRANSMISSION OF AN INFECTIOUS AGENT VIA A MEDICINAL PRODUCT [None]
  - VOMITING [None]
  - WHEEZING [None]
